FAERS Safety Report 4407086-9 (Version None)
Quarter: 2004Q3

REPORT INFORMATION
  Report Type: 
  Country: None (occurrence: None)
  Receive Date: 20040721
  Receipt Date: 20040715
  Transmission Date: 20050211
  Serious: Yes (Hospitalization)
  Sender: FDA-Public Use
  Company Number: 2004UW14727

PATIENT
  Age: 63 Year
  Sex: Female

DRUGS (4)
  1. SEROQUEL [Suspect]
     Indication: MAJOR DEPRESSION
     Dosage: 50 MG PO
     Route: 048
     Dates: start: 20040322
  2. SEROQUEL [Suspect]
     Indication: MAJOR DEPRESSION
     Dosage: 100 MG PO
     Route: 048
     Dates: start: 20040426
  3. LIPITOR [Concomitant]
  4. ANTIHYPERTENSIVE [Concomitant]

REACTIONS (1)
  - KETOACIDOSIS [None]
